FAERS Safety Report 4627455-1 (Version None)
Quarter: 2005Q2

REPORT INFORMATION
  Report Type: 
  Country: None (occurrence: None)
  Receive Date: 20050405
  Receipt Date: 20050330
  Transmission Date: 20051028
  Serious: Yes (Life-Threatening, Hospitalization)
  Sender: FDA-Public Use
  Company Number: ES-MERCK-0503ESP00077

PATIENT
  Age: 27 Year
  Sex: Male

DRUGS (5)
  1. ZETIA [Suspect]
     Indication: TYPE IIA HYPERLIPIDAEMIA
     Route: 048
     Dates: start: 20040101, end: 20040101
  2. ZETIA [Suspect]
     Route: 048
     Dates: start: 20050101, end: 20050101
  3. ATORVASTATIN CALCIUM [Concomitant]
     Indication: TYPE IIA HYPERLIPIDAEMIA
     Route: 048
     Dates: end: 20040101
  4. ATORVASTATIN CALCIUM [Concomitant]
     Route: 048
     Dates: start: 20050101, end: 20050101
  5. LECITHIN [Concomitant]
     Route: 065

REACTIONS (6)
  - ASTHENIA [None]
  - COMA [None]
  - FALL [None]
  - HEADACHE [None]
  - MENINGITIS VIRAL [None]
  - PARAESTHESIA [None]
